FAERS Safety Report 20245912 (Version 2)
Quarter: 2022Q1

REPORT INFORMATION
  Report Type: Spontaneous
  Country: US (occurrence: US)
  Receive Date: 20211229
  Receipt Date: 20220209
  Transmission Date: 20220424
  Serious: No
  Sender: FDA-Public Use
  Company Number: US-BRISTOL-MYERS SQUIBB COMPANY-BMS-2021-142719

PATIENT
  Age: 71 Year
  Sex: Female

DRUGS (3)
  1. DASATINIB [Suspect]
     Active Substance: DASATINIB
     Indication: Chronic myeloid leukaemia
     Dosage: 100 MILLIGRAM, QD
     Route: 048
     Dates: start: 202112
  2. DASATINIB [Suspect]
     Active Substance: DASATINIB
     Indication: White blood cell count increased
  3. DASATINIB [Suspect]
     Active Substance: DASATINIB
     Indication: Essential thrombocythaemia

REACTIONS (3)
  - Skin disorder [Unknown]
  - Hypersensitivity [Unknown]
  - Intentional product use issue [Unknown]

NARRATIVE: CASE EVENT DATE: 20211222
